FAERS Safety Report 8226327-3 (Version None)
Quarter: 2012Q1

REPORT INFORMATION
  Report Type: 
  Country: None (occurrence: None)
  Receive Date: 20120321
  Receipt Date: 20120316
  Transmission Date: 20120608
  Serious: Yes (Hospitalization)
  Sender: FDA-Public Use
  Company Number: DE-ROCHE-1050238

PATIENT
  Sex: Female

DRUGS (4)
  1. HERCEPTIN [Suspect]
  2. CHEMOTHERAPY NOS [Concomitant]
     Indication: BREAST CANCER METASTATIC
  3. TAXOL [Concomitant]
     Indication: BREAST CANCER METASTATIC
     Dates: start: 20100101
  4. HERCEPTIN [Suspect]
     Indication: BREAST CANCER METASTATIC
     Dates: start: 20100101

REACTIONS (6)
  - PYREXIA [None]
  - RENAL DISORDER [None]
  - CHILLS [None]
  - NEPHRITIS [None]
  - SINUSITIS [None]
  - CYSTITIS [None]
